FAERS Safety Report 26121749 (Version 1)
Quarter: 2025Q4

REPORT INFORMATION
  Report Type: Report from Study
  Country: US (occurrence: US)
  Receive Date: 20251204
  Receipt Date: 20251204
  Transmission Date: 20260117
  Serious: Yes (Hospitalization)
  Sender: SCPHARMACEUTICALS
  Company Number: US-SCPHARMACEUTICALS-2025-SCPH-US000792

PATIENT

DRUGS (1)
  1. FUROSCIX [Suspect]
     Active Substance: FUROSEMIDE
     Indication: Fluid retention
     Dosage: 80 MG
     Route: 058

REACTIONS (2)
  - Condition aggravated [Recovering/Resolving]
  - Drug effect less than expected [Recovering/Resolving]

NARRATIVE: CASE EVENT DATE: 20251117
